FAERS Safety Report 6766261-9 (Version None)
Quarter: 2010Q2

REPORT INFORMATION
  Report Type: 
  Country: None (occurrence: None)
  Receive Date: 20100601
  Receipt Date: 20100517
  Transmission Date: 20101027
  Serious: Yes (Hospitalization)
  Sender: FDA-Public Use
  Company Number: 20100517CINRY1482

PATIENT
  Age: 60 Year
  Sex: Male

DRUGS (4)
  1. CINRYZE (C1 ESTERASE INHIBITOR (HUMAN)) INJECTION FOR INFUSION) (C1 [Suspect]
     Indication: HEREDITARY ANGIOEDEMA
     Dosage: (1000 UNIT, 2 IN 1 WK), INTRAVENOUS
     Route: 042
     Dates: start: 20100301
  2. CINRYZE (C1 ESTERASE INHIBITOR (HUMAN)) INJECTION FOR INFUSION) (C1 [Suspect]
     Indication: PROPHYLAXIS
     Dosage: (1000 UNIT, 2 IN 1 WK), INTRAVENOUS
     Route: 042
     Dates: start: 20100301
  3. PRILOSEC (OMEPRAZOLE) [Concomitant]
  4. VICODIN [Concomitant]

REACTIONS (5)
  - CONDITION AGGRAVATED [None]
  - HAEMATEMESIS [None]
  - HEREDITARY ANGIOEDEMA [None]
  - MALLORY-WEISS SYNDROME [None]
  - SMALL INTESTINAL OBSTRUCTION [None]
